FAERS Safety Report 5048163-1 (Version None)
Quarter: 2006Q3

REPORT INFORMATION
  Report Type: 
  Country: None (occurrence: None)
  Receive Date: 20060711
  Receipt Date: 20060414
  Transmission Date: 20061208
  Serious: Yes (Life-Threatening)
  Sender: FDA-Public Use
  Company Number: JP-ROCHE-444542

PATIENT
  Age: 74 Year
  Sex: Male

DRUGS (12)
  1. DENOSINE IV [Suspect]
     Indication: CYTOMEGALOVIRUS INFECTION
     Route: 042
     Dates: start: 20060302, end: 20060310
  2. ENDOXAN [Suspect]
     Indication: GOODPASTURE'S SYNDROME
     Route: 048
     Dates: start: 20060208, end: 20060212
  3. ENDOXAN [Suspect]
     Route: 048
     Dates: start: 20060212, end: 20060220
  4. PREDONINE [Concomitant]
     Dosage: FROM 26 FEBRUARY 2006, THE DOSE WAS REDUCED BY 5MG EVERY FIVE DAYS.
     Route: 048
     Dates: start: 20060204
  5. BAKTAR [Concomitant]
     Route: 048
     Dates: start: 20060204
  6. FRESH FROZEN PLASMA [Concomitant]
     Route: 042
     Dates: start: 20060207, end: 20060207
  7. FUNGIZONE [Concomitant]
     Route: 048
     Dates: start: 20060226
  8. MEROPEN [Concomitant]
     Route: 042
     Dates: start: 20060302
  9. STEROID NOS [Concomitant]
     Dosage: REPORTED AS: STEROID (ADRENAL HORMONE PREPARATIONS).
  10. BLOOD, PACKED RED CELLS [Concomitant]
     Dosage: ADMINISTERED FIVE TIMES IN TOTAL.
     Route: 042
     Dates: start: 20060320, end: 20060510
  11. NEUTROGIN [Concomitant]
     Route: 058
     Dates: start: 20060325, end: 20060328
  12. FUNGUARD [Concomitant]
     Route: 042
     Dates: start: 20060325, end: 20060329

REACTIONS (4)
  - BONE MARROW FAILURE [None]
  - MYELODYSPLASTIC SYNDROME [None]
  - PANCYTOPENIA [None]
  - RENAL FAILURE ACUTE [None]
